FAERS Safety Report 23777416 (Version 1)
Quarter: 2024Q2

REPORT INFORMATION
  Report Type: Spontaneous
  Country: US (occurrence: US)
  Receive Date: 20240424
  Receipt Date: 20240424
  Transmission Date: 20240715
  Serious: Yes (Death, Hospitalization, Other)
  Sender: FDA-Public Use
  Company Number: US-LEADINGPHARMA-US-2024LEALIT00098

PATIENT
  Age: 59 Year
  Sex: Female

DRUGS (2)
  1. NIFEDIPINE [Suspect]
     Active Substance: NIFEDIPINE
     Indication: Product used for unknown indication
     Route: 065
  2. PAXLOVID [Suspect]
     Active Substance: NIRMATRELVIR\RITONAVIR
     Indication: COVID-19
     Route: 065

REACTIONS (10)
  - Pulseless electrical activity [Fatal]
  - Lactic acidosis [Unknown]
  - Hypotension [Unknown]
  - Bradycardia [Unknown]
  - Right ventricular dysfunction [Unknown]
  - Ejection fraction decreased [Unknown]
  - Blood pressure systolic decreased [Unknown]
  - Distributive shock [Unknown]
  - Overdose [Unknown]
  - Drug interaction [Unknown]
